FAERS Safety Report 9690569 (Version 2)
Quarter: 2013Q4

REPORT INFORMATION
  Report Type: Report from Study
  Country: CL (occurrence: CL)
  Receive Date: 20131115
  Receipt Date: 20131121
  Transmission Date: 20140711
  Serious: Yes (Hospitalization)
  Sender: FDA-Public Use
  Company Number: PHHY2013CL130718

PATIENT
  Age: 55 Year
  Sex: Female

DRUGS (2)
  1. TAREG [Suspect]
     Indication: HYPERTENSION
     Dosage: 80 MG, UNK
  2. DILATREND [Concomitant]
     Indication: HYPERTENSION
     Dosage: 12.5 MG, UNK

REACTIONS (3)
  - Spinal disorder [Recovering/Resolving]
  - Abasia [Unknown]
  - Movement disorder [Unknown]
